FAERS Safety Report 5648154-3 (Version None)
Quarter: 2008Q1

REPORT INFORMATION
  Report Type: 
  Country: None (occurrence: None)
  Receive Date: 20080229
  Receipt Date: 20080214
  Transmission Date: 20080703
  Serious: Yes (Hospitalization)
  Sender: FDA-Public Use
  Company Number: 8029960

PATIENT
  Age: 73 Year
  Sex: Female
  Weight: 59 kg

DRUGS (8)
  1. KEPPRA [Suspect]
     Dosage: 1000 MG 2/D PO
     Route: 048
  2. KEPPRA [Suspect]
     Dosage: 500 MG 2/D PO
     Route: 048
  3. KEPPRA [Suspect]
     Dosage: 250 MG 2/D PO
     Route: 048
  4. FORTECORTIN [Concomitant]
  5. PANTOZOL [Concomitant]
  6. CARBIMAZOL [Concomitant]
  7. NOVALGIN [Concomitant]
  8. KABIVEN [Concomitant]

REACTIONS (5)
  - CEREBELLAR HAEMORRHAGE [None]
  - FALL [None]
  - FEMORAL NECK FRACTURE [None]
  - HEAD INJURY [None]
  - INTRACRANIAL TUMOUR HAEMORRHAGE [None]
